FAERS Safety Report 11709276 (Version 1)
Quarter: 2015Q4

REPORT INFORMATION
  Report Type: Spontaneous
  Country: US (occurrence: US)
  Receive Date: 20151104
  Receipt Date: 20151104
  Transmission Date: 20160304
  Serious: No
  Sender: FDA-Public Use
  Company Number: US-ELI_LILLY_AND_COMPANY-US201106001662

PATIENT
  Age: 70 Year
  Sex: Female

DRUGS (3)
  1. FORTEO [Suspect]
     Active Substance: TERIPARATIDE
     Indication: OSTEOPOROSIS
     Dosage: 20 UG, QD
     Route: 065
     Dates: start: 20110519
  2. FORTEO [Suspect]
     Active Substance: TERIPARATIDE
     Dosage: 20 UG, QD
  3. FORTEO [Suspect]
     Active Substance: TERIPARATIDE
     Dosage: 20 UG, QD
     Route: 065

REACTIONS (11)
  - Erythema [Recovering/Resolving]
  - Dry skin [Unknown]
  - Drug dose omission [Unknown]
  - Local swelling [Recovering/Resolving]
  - Pain in extremity [Unknown]
  - Injection site erythema [Not Recovered/Not Resolved]
  - Dyspnoea [Unknown]
  - Nausea [Unknown]
  - Arthralgia [Unknown]
  - Fatigue [Unknown]
  - Joint injury [Unknown]

NARRATIVE: CASE EVENT DATE: 20110519
